FAERS Safety Report 16165277 (Version 1)
Quarter: 2019Q2

REPORT INFORMATION
  Report Type: Spontaneous
  Country: JP (occurrence: JP)
  Receive Date: 20190405
  Receipt Date: 20190405
  Transmission Date: 20190711
  Serious: Yes (Hospitalization)
  Sender: FDA-Public Use
  Company Number: JP-ELI_LILLY_AND_COMPANY-JP201904001202

PATIENT
  Age: 21 Year
  Sex: Male
  Weight: 55.6 kg

DRUGS (27)
  1. HALOPERIDOL. [Suspect]
     Active Substance: HALOPERIDOL
     Dosage: 4.5 MG, DAILY
     Route: 048
     Dates: start: 20080321, end: 20080326
  2. BROMAZEPAM [Concomitant]
     Active Substance: BROMAZEPAM
     Indication: SCHIZOPHRENIA
     Route: 048
     Dates: start: 20080220, end: 20080425
  3. FAMOTIDINE. [Concomitant]
     Active Substance: FAMOTIDINE
     Indication: PRODUCT USED FOR UNKNOWN INDICATION
     Route: 048
     Dates: start: 20080220, end: 20080425
  4. LEVOMEPROMAZINE [Concomitant]
     Active Substance: LEVOMEPROMAZINE
     Dosage: 50 MG, DAILY
     Route: 048
     Dates: start: 20080319, end: 20080321
  5. OLANZAPINE. [Suspect]
     Active Substance: OLANZAPINE
     Indication: SCHIZOPHRENIA
     Dosage: 10 MG BID
     Route: 048
     Dates: start: 20080220, end: 20080425
  6. HALOPERIDOL. [Suspect]
     Active Substance: HALOPERIDOL
     Indication: SCHIZOPHRENIA
     Dosage: 9 MG, DAILY
     Route: 048
     Dates: end: 20080311
  7. HALOPERIDOL. [Suspect]
     Active Substance: HALOPERIDOL
     Dosage: 4.5 MG, DAILY
     Route: 048
     Dates: start: 20080312, end: 20080318
  8. HALOPERIDOL. [Suspect]
     Active Substance: HALOPERIDOL
     Dosage: 9 MG, DAILY
     Route: 048
     Dates: start: 20080319, end: 20080320
  9. LITHIUM CARBONATE. [Suspect]
     Active Substance: LITHIUM CARBONATE
     Indication: SCHIZOPHRENIA
     Dosage: 800 MG, DAILY
     Route: 048
     Dates: start: 20080305, end: 20080425
  10. LODOPIN [ZOTEPINE] [Suspect]
     Active Substance: ZOTEPINE
     Dosage: 35 MG, UNKNOWN
     Route: 048
     Dates: end: 20080319
  11. LODOPIN [ZOTEPINE] [Suspect]
     Active Substance: ZOTEPINE
     Dosage: 105 MG, DAILY
     Route: 048
     Dates: end: 20080312
  12. BIPERIDEN [Concomitant]
     Active Substance: BIPERIDEN
     Indication: PARKINSONISM
     Dosage: 3 MG, DAILY
     Route: 048
     Dates: start: 20080312, end: 20080425
  13. LEVOMEPROMAZINE [Concomitant]
     Active Substance: LEVOMEPROMAZINE
     Indication: SCHIZOPHRENIA
     Dosage: 50 MG, DAILY
     Route: 048
     Dates: end: 20080312
  14. HALOPERIDOL. [Suspect]
     Active Substance: HALOPERIDOL
     Dosage: 9 MG TID, THEN 1.5 MG TID, THEN 9 MG AND THEN 1.5 MG TID
     Route: 048
     Dates: start: 20080311, end: 20080326
  15. LODOPIN [ZOTEPINE] [Suspect]
     Active Substance: ZOTEPINE
     Dosage: 75 MG, UNKNOWN
     Route: 048
     Dates: start: 20080312, end: 20080312
  16. VALPROIC ACID. [Suspect]
     Active Substance: VALPROIC ACID
     Indication: SCHIZOPHRENIA
     Dosage: 200 MG TID
     Route: 048
     Dates: start: 20080227, end: 20080425
  17. NITRAZEPAM [Concomitant]
     Active Substance: NITRAZEPAM
     Indication: SCHIZOPHRENIA
     Dosage: 10 MG, DAILY
     Route: 048
     Dates: start: 20080227, end: 20080425
  18. LODOPIN [ZOTEPINE] [Suspect]
     Active Substance: ZOTEPINE
     Indication: SCHIZOPHRENIA
     Dosage: 50 MG TID, THEN 35 MG
     Route: 048
     Dates: start: 20080305, end: 20080319
  19. SEROQUEL [Suspect]
     Active Substance: QUETIAPINE FUMARATE
     Indication: SCHIZOPHRENIA
     Dosage: 200 MG UID/QD, THEN 300 MG BID
     Route: 048
     Dates: start: 20080331, end: 20080408
  20. MOSAPRIDE CITRATE [Concomitant]
     Active Substance: MOSAPRIDE CITRATE
     Indication: CHRONIC GASTRITIS
     Route: 048
     Dates: start: 20080220, end: 20080425
  21. PROMETHAZINE [Concomitant]
     Active Substance: PROMETHAZINE\PROMETHAZINE HYDROCHLORIDE
     Indication: PARKINSONISM
     Dosage: 75 MG, DAILY
     Route: 048
     Dates: start: 20080305, end: 20080425
  22. LITHIUM. [Suspect]
     Active Substance: LITHIUM
     Indication: SCHIZOPHRENIA
     Dosage: 400 MG, DAILY
     Route: 048
     Dates: start: 20080227, end: 20080304
  23. RISPERIDONE. [Suspect]
     Active Substance: RISPERIDONE
     Indication: SCHIZOPHRENIA
     Dosage: 3 ML, TID
     Route: 048
     Dates: start: 20080223, end: 20080326
  24. TEPRENONE [Concomitant]
     Active Substance: TEPRENONE
     Indication: CHRONIC GASTRITIS
     Dosage: 50 MG, DAILY
     Route: 048
     Dates: start: 20080220, end: 20080425
  25. SEROQUEL [Suspect]
     Active Substance: QUETIAPINE FUMARATE
     Dosage: 600 MG, DAILY
     Route: 048
     Dates: start: 20080409, end: 20080409
  26. FLUNITRAZEPAM [Concomitant]
     Active Substance: FLUNITRAZEPAM
     Indication: SCHIZOPHRENIA
     Route: 048
     Dates: start: 20080227, end: 20080425
  27. LACTOMIN [Concomitant]
     Active Substance: LACTOBACILLUS ACIDOPHILUS
     Indication: CONSTIPATION
     Dosage: DOSAGE FORM:GRANULES
     Route: 048
     Dates: start: 20080220, end: 20080425

REACTIONS (6)
  - Muscle rigidity [Unknown]
  - Neuroleptic malignant syndrome [Recovered/Resolved]
  - Hyperhidrosis [Unknown]
  - Fluid intake reduced [Unknown]
  - Salivary hypersecretion [Unknown]
  - Rhabdomyolysis [Recovered/Resolved]

NARRATIVE: CASE EVENT DATE: 20080312
